FAERS Safety Report 22812471 (Version 3)
Quarter: 2023Q4

REPORT INFORMATION
  Report Type: Report from Study
  Country: US (occurrence: US)
  Receive Date: 20230811
  Receipt Date: 20231018
  Transmission Date: 20240109
  Serious: Yes (Hospitalization, Other)
  Sender: FDA-Public Use
  Company Number: US-ABBVIE-5362034

PATIENT
  Sex: Female
  Weight: 97 kg

DRUGS (9)
  1. HUMIRA [Suspect]
     Active Substance: ADALIMUMAB
     Indication: Product used for unknown indication
     Dosage: FORM STRENGTH: 40 MILLIGRAMS
     Route: 058
     Dates: start: 20220314
  2. HUMIRA [Suspect]
     Active Substance: ADALIMUMAB
     Dosage: FORM STRENGTH: 40 MILLIGRAMS
     Route: 058
  3. LISINOPRIL [Concomitant]
     Active Substance: LISINOPRIL
     Indication: Hypertension
     Dosage: PILL
     Route: 048
  4. ATORVASTATIN [Concomitant]
     Active Substance: ATORVASTATIN
     Indication: Blood cholesterol increased
     Dosage: PILL
     Route: 048
  5. CETIRIZINE HYDROCHLORIDE [Concomitant]
     Active Substance: CETIRIZINE HYDROCHLORIDE
     Indication: Multiple allergies
     Dosage: PILL
     Route: 048
  6. ESTRADIOL [Concomitant]
     Active Substance: ESTRADIOL
     Indication: Hysterectomy
  7. LEVOTHYROXINE SODIUM [Concomitant]
     Active Substance: LEVOTHYROXINE SODIUM
     Indication: Hypothyroidism
     Dosage: 75 MCG, PILL
     Route: 048
  8. FLONASE [Concomitant]
     Active Substance: FLUTICASONE PROPIONATE
     Indication: Product used for unknown indication
  9. TESTOSTERONE [Concomitant]
     Active Substance: TESTOSTERONE
     Indication: Hysterectomy

REACTIONS (5)
  - Spinal cord compression [Recovering/Resolving]
  - Grip strength decreased [Unknown]
  - Spondylitis [Not Recovered/Not Resolved]
  - Muscular weakness [Unknown]
  - Gait disturbance [Unknown]
